FAERS Safety Report 9255060 (Version 1)
Quarter: 2013Q2

REPORT INFORMATION
  Report Type: Spontaneous
  Country: US (occurrence: None)
  Receive Date: 20130418
  Receipt Date: 20130418
  Transmission Date: 20140414
  Serious: Yes (Disabling, Other)
  Sender: FDA-Public Use
  Company Number: 2013P1004619

PATIENT
  Age: 28 Year
  Sex: Male
  Weight: 131.54 kg

DRUGS (4)
  1. OXTELLAR XR [Suspect]
     Indication: EPILEPSY
     Route: 048
     Dates: start: 20130403
  2. DILANTIN [Suspect]
     Indication: EPILEPSY
     Route: 048
     Dates: end: 20130402
  3. CELONTIN [Concomitant]
  4. ONFI [Concomitant]

REACTIONS (4)
  - Fall [None]
  - Condition aggravated [None]
  - Anticonvulsant drug level decreased [None]
  - Inhibitory drug interaction [None]
